FAERS Safety Report 9188408 (Version 2)
Quarter: 2013Q1

REPORT INFORMATION
  Report Type: Spontaneous
  Country: US (occurrence: US)
  Receive Date: 20130204
  Receipt Date: 20130204
  Transmission Date: 20140127
  Serious: Yes (Hospitalization)
  Sender: FDA-Public Use
  Company Number: 2013SP000776

PATIENT
  Age: 71 Year
  Sex: Male
  Weight: 60.33 kg

DRUGS (7)
  1. FLUOROURACIL [Suspect]
     Indication: PSYCHOTIC DISORDER
     Route: 040
     Dates: start: 20121218, end: 20121220
  2. IRINOTECAN HCL [Suspect]
     Route: 042
     Dates: start: 20121218
  3. FOLINIC ACID [Suspect]
     Route: 042
     Dates: start: 20121218, end: 20121218
  4. HYDROCHLOROTHIAZIDE [Concomitant]
  5. ESTROGENS CONJUGATED [Concomitant]
  6. CALCIUM [Concomitant]
  7. POTASSIUM [Concomitant]

REACTIONS (2)
  - Psychotic disorder [Unknown]
  - Transaminases increased [Not Recovered/Not Resolved]
